APPROVED DRUG PRODUCT: ELOCON
Active Ingredient: MOMETASONE FUROATE
Strength: 0.1% **Federal Register determination that product was not discontinued or withdrawn for safety or effectiveness reasons**
Dosage Form/Route: LOTION;TOPICAL
Application: N019796 | Product #001
Applicant: ORGANON LLC A SUB OF ORGANON AND CO
Approved: Mar 30, 1989 | RLD: Yes | RS: No | Type: DISCN